FAERS Safety Report 6507553-8 (Version None)
Quarter: 2009Q4

REPORT INFORMATION
  Report Type: 
  Country: None (occurrence: None)
  Receive Date: 20091221
  Receipt Date: 20091211
  Transmission Date: 20100525
  Serious: Yes (Death)
  Sender: FDA-Public Use
  Company Number: GXKR2009AU11910

PATIENT
  Age: 62 Year
  Sex: Female

DRUGS (7)
  1. CEFAZOLIN SANDOZ (NGX) [Suspect]
     Indication: ANTIBIOTIC PROPHYLAXIS
     Dosage: 1 DF, ONCE/SINGLE
     Route: 042
     Dates: start: 20091020
  2. MIDAZOLAM HCL [Concomitant]
  3. ROPIVACAINE [Concomitant]
  4. FENTANYL [Concomitant]
  5. PROPOFOL [Concomitant]
  6. VECURONIUM BROMIDE [Concomitant]
  7. GENTAMICIN [Concomitant]
     Dosage: 160 MG, UNK

REACTIONS (1)
  - ANAPHYLACTIC REACTION [None]
